FAERS Safety Report 11612026 (Version 1)
Quarter: 2015Q4

REPORT INFORMATION
  Report Type: Spontaneous
  Country: None (occurrence: US)
  Receive Date: 20151008
  Receipt Date: 20151008
  Transmission Date: 20160304
  Serious: No
  Sender: FDA-Public Use
  Company Number: US-MERZ NORTH AMERICA, INC.-15MRZ-00549

PATIENT
  Sex: Female

DRUGS (1)
  1. XEOMIN [Suspect]
     Active Substance: INCOBOTULINUMTOXINA
     Indication: SKIN COSMETIC PROCEDURE
     Dosage: 4 UNITS - FRONTALIS?10 UNITS - GLABELLAR?6 UNITS- CROW^S FEET
     Dates: start: 20150813

REACTIONS (2)
  - Eye pruritus [None]
  - Ocular hyperaemia [None]
